FAERS Safety Report 10144860 (Version 1)
Quarter: 2014Q2

REPORT INFORMATION
  Report Type: Spontaneous
  Country: US (occurrence: US)
  Receive Date: 20140430
  Receipt Date: 20140430
  Transmission Date: 20141212
  Serious: No
  Sender: FDA-Public Use
  Company Number: US-SANOFI-AVENTIS-2013SA069824

PATIENT
  Sex: Female

DRUGS (3)
  1. DEMEROL [Suspect]
  2. LYRICA [Concomitant]
     Route: 048
  3. LYRICA [Concomitant]
     Route: 048

REACTIONS (1)
  - Drug hypersensitivity [Unknown]
